FAERS Safety Report 4641161-9 (Version None)
Quarter: 2005Q2

REPORT INFORMATION
  Report Type: 
  Country: None (occurrence: None)
  Receive Date: 20050421
  Receipt Date: 20050228
  Transmission Date: 20051028
  Serious: Yes (Other)
  Sender: FDA-Public Use
  Company Number: 200511985GDDC

PATIENT
  Sex: Male

DRUGS (3)
  1. TELFAST [Suspect]
     Indication: RASH PRURITIC
     Route: 048
     Dates: start: 20050226, end: 20050228
  2. ENALAPRIL MALEATE [Concomitant]
     Indication: HYPERTENSION
     Route: 048
  3. AROPAX [Concomitant]
     Indication: DEPRESSION
     Route: 048

REACTIONS (1)
  - JAUNDICE [None]
